FAERS Safety Report 16958942 (Version 4)
Quarter: 2020Q1

REPORT INFORMATION
  Report Type: Spontaneous
  Country: JP (occurrence: JP)
  Receive Date: 20191024
  Receipt Date: 20200108
  Transmission Date: 20200409
  Serious: Yes (Hospitalization)
  Sender: FDA-Public Use
  Company Number: JP-LUNDBECK-DKLU3006362

PATIENT
  Age: 78 Year
  Sex: Male

DRUGS (2)
  1. DOPS [Suspect]
     Active Substance: DROXIDOPA
     Indication: PRODUCT USED FOR UNKNOWN INDICATION
     Route: 048
  2. DOPS [Suspect]
     Active Substance: DROXIDOPA
     Route: 048

REACTIONS (1)
  - Progressive supranuclear palsy [Unknown]
